FAERS Safety Report 10284232 (Version 1)
Quarter: 2014Q3

REPORT INFORMATION
  Report Type: Spontaneous
  Country: FR (occurrence: FR)
  Receive Date: 20140708
  Receipt Date: 20140708
  Transmission Date: 20150326
  Serious: Yes (Hospitalization, Other)
  Sender: FDA-Public Use
  Company Number: FR-SA-2014SA085503

PATIENT
  Age: 58 Year
  Sex: Female

DRUGS (22)
  1. PARIET [Concomitant]
     Active Substance: RABEPRAZOLE SODIUM
     Dates: start: 2000
  2. MOTILIUM [Concomitant]
     Active Substance: DOMPERIDONE
     Dates: start: 20130225
  3. TRASTUZUMAB [Suspect]
     Active Substance: TRASTUZUMAB
     Indication: HER-2 POSITIVE BREAST CANCER
     Route: 042
  4. GLUCOR [Concomitant]
     Active Substance: ACARBOSE
     Dates: start: 1998
  5. HEMIGOXINE NATIVELLE [Concomitant]
     Active Substance: DIGOXIN
     Dates: start: 201208
  6. SODIUM BICARBONATE. [Concomitant]
     Active Substance: SODIUM BICARBONATE
     Dates: start: 20130225
  7. TRASTUZUMAB [Suspect]
     Active Substance: TRASTUZUMAB
     Indication: HER-2 POSITIVE BREAST CANCER
     Route: 042
     Dates: start: 20130410
  8. LEVOTHYROXINE [Concomitant]
     Active Substance: LEVOTHYROXINE
     Dates: start: 1995
  9. ATENOLOL. [Concomitant]
     Active Substance: ATENOLOL
     Dates: start: 201208
  10. NEULASTA [Concomitant]
     Active Substance: PEGFILGRASTIM
     Dates: start: 20130227, end: 20130227
  11. ULTRA-LEVURE [Concomitant]
     Active Substance: SACCHAROMYCES CEREVISIAE
  12. ENDOTELON [Concomitant]
     Active Substance: GRAPE SEED EXTRACT
  13. PREVISCAN [Concomitant]
     Active Substance: FLUINDIONE
     Dates: start: 201208
  14. DOCETAXEL [Suspect]
     Active Substance: DOCETAXEL
     Indication: PRODUCT USED FOR UNKNOWN INDICATION
     Route: 065
     Dates: start: 20130410
  15. EPIRUBICIN [Suspect]
     Active Substance: EPIRUBICIN
     Indication: HER-2 POSITIVE BREAST CANCER
     Route: 065
     Dates: start: 20130205
  16. FLUOROURACIL. [Suspect]
     Active Substance: FLUOROURACIL
     Indication: HER-2 POSITIVE BREAST CANCER
     Route: 042
     Dates: start: 20130205
  17. BLINDED THERAPY [Suspect]
     Active Substance: UNSPECIFIED INGREDIENT
     Indication: HER-2 POSITIVE BREAST CANCER
     Route: 042
  18. CYCLOPHOSPHAMIDE. [Suspect]
     Active Substance: CYCLOPHOSPHAMIDE
     Indication: HER-2 POSITIVE BREAST CANCER
     Route: 042
     Dates: start: 20130205
  19. LASILIX [Concomitant]
     Active Substance: FUROSEMIDE
     Dates: start: 2012
  20. DAFALGAN [Concomitant]
     Active Substance: ACETAMINOPHEN
     Dates: start: 2012
  21. METFORMIN [Concomitant]
     Active Substance: METFORMIN HYDROCHLORIDE
     Dates: start: 1998
  22. BLINDED THERAPY [Suspect]
     Active Substance: UNSPECIFIED INGREDIENT
     Indication: HER-2 POSITIVE BREAST CANCER
     Dosage: LOADING DOSE-AS PER PROTOCOL
     Route: 042
     Dates: start: 20130410, end: 20130410

REACTIONS (7)
  - General physical health deterioration [Unknown]
  - Febrile neutropenia [Recovered/Resolved]
  - Toxicity to various agents [Recovered/Resolved]
  - Ejection fraction decreased [Recovered/Resolved]
  - Febrile neutropenia [Recovered/Resolved]
  - Renal impairment [Recovered/Resolved]
  - Tumour lysis syndrome [Recovered/Resolved]

NARRATIVE: CASE EVENT DATE: 20130307
